FAERS Safety Report 6734232-4 (Version None)
Quarter: 2010Q2

REPORT INFORMATION
  Report Type: 
  Country: None (occurrence: None)
  Receive Date: 20100520
  Receipt Date: 20100507
  Transmission Date: 20101027
  Serious: Yes (Hospitalization, Other)
  Sender: FDA-Public Use
  Company Number: PHHY2010BR29701

PATIENT
  Sex: Female

DRUGS (4)
  1. DIOVAN [Suspect]
     Indication: HYPERTENSION
     Dosage: 160 MG, QD
     Route: 048
  2. METFORMIN HYDROCHLORIDE [Concomitant]
     Indication: TYPE 2 DIABETES MELLITUS
     Dosage: UNK, 1 TABLET A DAY
     Route: 048
     Dates: start: 20040101
  3. GLIMEPIRIDE [Concomitant]
     Indication: TYPE 2 DIABETES MELLITUS
     Dosage: 4 MG, (1 TABLET A DAY)
     Route: 048
     Dates: start: 20040101
  4. SIMVASTATIN [Concomitant]
     Dosage: 20 MG, (1 TABLET A DAY)
     Dates: start: 20040101

REACTIONS (5)
  - BLOOD PRESSURE INADEQUATELY CONTROLLED [None]
  - FALL [None]
  - GAIT DISTURBANCE [None]
  - INTERNAL FIXATION OF FRACTURE [None]
  - TIBIA FRACTURE [None]
